FAERS Safety Report 10960350 (Version 3)
Quarter: 2015Q2

REPORT INFORMATION
  Report Type: Spontaneous
  Country: CN (occurrence: CN)
  Receive Date: 20150327
  Receipt Date: 20150507
  Transmission Date: 20150821
  Serious: Yes (Other)
  Sender: FDA-Public Use
  Company Number: CN-JNJFOC-20150313846

PATIENT
  Age: 9 Year
  Sex: Female

DRUGS (1)
  1. TOPAMAX [Suspect]
     Active Substance: TOPIRAMATE
     Indication: EPILEPSY
     Route: 048

REACTIONS (3)
  - Product counterfeit [Unknown]
  - Epilepsy [Not Recovered/Not Resolved]
  - Abdominal discomfort [Unknown]
